FAERS Safety Report 8170620-X (Version None)
Quarter: 2012Q1

REPORT INFORMATION
  Report Type: 
  Country: None (occurrence: None)
  Receive Date: 20120106
  Receipt Date: 20110804
  Transmission Date: 20120608
  Serious: Yes (Other)
  Sender: FDA-Public Use
  Company Number: US-006587

PATIENT
  Age: 58 Year
  Sex: Female

DRUGS (2)
  1. MULTIHANCE [Suspect]
     Indication: HEADACHE
     Dosage: 15ML INTRAVENOUS (NOT OTHERWISE SPECIFIED)
     Route: 042
     Dates: start: 20110801, end: 20110801
  2. MULTIHANCE [Suspect]
     Indication: NUCLEAR MAGNETIC RESONANCE IMAGING BRAIN
     Dosage: 15ML INTRAVENOUS (NOT OTHERWISE SPECIFIED)
     Route: 042
     Dates: start: 20110801, end: 20110801

REACTIONS (1)
  - CONTRAST MEDIA ALLERGY [None]
